FAERS Safety Report 15419981 (Version 2)
Quarter: 2018Q4

REPORT INFORMATION
  Report Type: Spontaneous
  Country: CA (occurrence: CA)
  Receive Date: 20180924
  Receipt Date: 20181119
  Transmission Date: 20190204
  Serious: Yes (Hospitalization)
  Sender: FDA-Public Use
  Company Number: CA-BAYER-2018-174277

PATIENT

DRUGS (3)
  1. ASPIRIN. [Suspect]
     Active Substance: ASPIRIN
     Dosage: 6 DF, UNK
     Route: 048
     Dates: start: 2018
  2. ASPIRIN. [Suspect]
     Active Substance: ASPIRIN
     Dosage: 2 DF, ONCE
     Route: 048
     Dates: start: 20180213
  3. ASPIRIN. [Suspect]
     Active Substance: ASPIRIN
     Dosage: 1 DF, ONCE
     Route: 048
     Dates: start: 201808

REACTIONS (7)
  - Chills [None]
  - Asthenia [None]
  - Gait disturbance [None]
  - Feeling abnormal [None]
  - Product quality issue [None]
  - Asthenia [None]
  - Chills [None]

NARRATIVE: CASE EVENT DATE: 20180213
